FAERS Safety Report 23552105 (Version 1)
Quarter: 2024Q1

REPORT INFORMATION
  Report Type: Spontaneous
  Country: FR (occurrence: FR)
  Receive Date: 20240222
  Receipt Date: 20240222
  Transmission Date: 20240410
  Serious: Yes (Hospitalization, Other)
  Sender: FDA-Public Use
  Company Number: FR-AFSSAPS-PO2024000085

PATIENT
  Age: 21 Year
  Sex: Female

DRUGS (3)
  1. ALPRAZOLAM [Suspect]
     Active Substance: ALPRAZOLAM
     Indication: Toxicity to various agents
     Dosage: 8 MILLIGRAM, 1 TOTAL
     Route: 048
     Dates: start: 20230113, end: 20230113
  2. FLUOXETINE [Suspect]
     Active Substance: FLUOXETINE HYDROCHLORIDE
     Indication: Toxicity to various agents
     Dosage: 260 MILLIGRAM, 1 TOTAL
     Route: 048
     Dates: start: 20230113, end: 20230113
  3. DOLIPRANE [Suspect]
     Active Substance: ACETAMINOPHEN
     Indication: Toxicity to various agents
     Dosage: 16 GRAM, 1 TOTAL
     Route: 048
     Dates: start: 20230113, end: 20230113

REACTIONS (3)
  - Hepatic cytolysis [Not Recovered/Not Resolved]
  - Coagulation factor decreased [Recovered/Resolved]
  - Prothrombin time ratio decreased [Recovered/Resolved]

NARRATIVE: CASE EVENT DATE: 20230114
